FAERS Safety Report 8184938-8 (Version None)
Quarter: 2012Q1

REPORT INFORMATION
  Report Type: 
  Country: None (occurrence: None)
  Receive Date: 20120305
  Receipt Date: 20120227
  Transmission Date: 20120608
  Serious: Yes (Other)
  Sender: FDA-Public Use
  Company Number: JP-GLAXOSMITHKLINE-B0691248A

PATIENT
  Sex: Female

DRUGS (6)
  1. ALPRAZOLAM [Concomitant]
     Indication: ANXIETY
     Dosage: .8MG PER DAY
     Route: 048
  2. LAMICTAL [Suspect]
     Indication: EPILEPSY
     Dosage: 350MG PER DAY
     Route: 048
     Dates: start: 20100423
  3. LAC B [Concomitant]
     Indication: GASTROINTESTINAL DISORDER
     Dosage: 3G PER DAY
     Route: 048
  4. MYSTAN [Concomitant]
     Indication: EPILEPSY
     Dosage: 10MG PER DAY
     Route: 048
  5. CELOOP [Concomitant]
     Indication: GASTRITIS
     Dosage: 150MG PER DAY
     Route: 048
  6. ZOLPIDEM [Concomitant]
     Indication: INSOMNIA
     Dosage: 10MG PER DAY
     Route: 048

REACTIONS (1)
  - HYPERAMYLASAEMIA [None]
